FAERS Safety Report 20213798 (Version 2)
Quarter: 2021Q4

REPORT INFORMATION
  Report Type: Spontaneous
  Country: BR (occurrence: BR)
  Receive Date: 20211221
  Receipt Date: 20211228
  Transmission Date: 20220303
  Serious: Yes (Hospitalization, Other)
  Sender: FDA-Public Use
  Company Number: BR-BoehringerIngelheim-2021-BI-144299

PATIENT
  Age: 73 Year
  Sex: Female
  Weight: 76 kg

DRUGS (3)
  1. GILOTRIF [Suspect]
     Active Substance: AFATINIB
     Indication: Non-small cell lung cancer metastatic
     Route: 048
     Dates: start: 20180807, end: 20211206
  2. GILOTRIF [Suspect]
     Active Substance: AFATINIB
     Indication: Gene mutation
  3. SYNTHROID [Concomitant]
     Active Substance: LEVOTHYROXINE SODIUM
     Indication: Hypothyroidism

REACTIONS (2)
  - Hydrocephalus [Not Recovered/Not Resolved]
  - Meningitis fungal [Not Recovered/Not Resolved]

NARRATIVE: CASE EVENT DATE: 20210601
